FAERS Safety Report 6144723-5 (Version None)
Quarter: 2009Q2

REPORT INFORMATION
  Report Type: 
  Country: None (occurrence: None)
  Receive Date: 20090401
  Receipt Date: 20090326
  Transmission Date: 20091009
  Serious: Yes (Death, Hospitalization)
  Sender: FDA-Public Use
  Company Number: 09GB000396

PATIENT
  Age: 89 Year
  Sex: Male
  Weight: 54 kg

DRUGS (13)
  1. NAPROXEN SODIUM [Suspect]
     Indication: ANALGESIA
     Dosage: 500 MG, BID, ORAL
     Route: 048
     Dates: end: 20080601
  2. ZOLEDRONIC ACID [Suspect]
     Indication: OSTEITIS DEFORMANS
     Dosage: 5 MG, INTRAVENOUS
     Route: 042
     Dates: start: 20080605, end: 20080605
  3. ADCAL-D3 (CALCIUM CARBONATE, COLECALCIFEROL) [Concomitant]
  4. BUPRENORPHINE HCL [Concomitant]
  5. CALCIUM GLUCONATE [Concomitant]
  6. CALFOVIT D3 (CALCIUM PHOSPHATE COLECALCIFEROL) [Concomitant]
  7. CLARITHROMYCIN [Concomitant]
  8. FUNGILIN (AMPHOTERICIN B) [Concomitant]
  9. LANSOPRAZOLE [Concomitant]
  10. LATANOPROST [Concomitant]
  11. METOCLOPRAMIDE (METOCLOPRAMIDE HYDROCHLORIDE) [Concomitant]
  12. NYSTATIN [Concomitant]
  13. ORAMORPH SR [Concomitant]

REACTIONS (5)
  - DEHYDRATION [None]
  - HEART RATE INCREASED [None]
  - LOWER RESPIRATORY TRACT INFECTION [None]
  - PNEUMONIA [None]
  - RENAL FAILURE ACUTE [None]
